FAERS Safety Report 7597286-1 (Version None)
Quarter: 2011Q3

REPORT INFORMATION
  Report Type: 
  Country: None (occurrence: None)
  Receive Date: 20110708
  Receipt Date: 20110304
  Transmission Date: 20111222
  Serious: No
  Sender: FDA-Public Use
  Company Number: US-GLAXOSMITHKLINE-A0916783A

PATIENT
  Age: 3 Year
  Sex: Male

DRUGS (2)
  1. PROAIR HFA [Concomitant]
  2. FLOVENT [Suspect]
     Indication: ASTHMA
     Dosage: 2PUFF TWICE PER DAY
     Route: 055
     Dates: start: 20091101

REACTIONS (2)
  - DRUG ADMINISTRATION ERROR [None]
  - WEIGHT INCREASED [None]
